FAERS Safety Report 26009710 (Version 1)
Quarter: 2025Q4

REPORT INFORMATION
  Report Type: Spontaneous
  Country: JP (occurrence: JP)
  Receive Date: 20251107
  Receipt Date: 20251107
  Transmission Date: 20260118
  Serious: Yes (Hospitalization)
  Sender: OXFORD PHARMACEUTICALS, LLC
  Company Number: JP-Oxford Pharmaceuticals, LLC-2188073

PATIENT
  Age: 49 Year
  Sex: Male

DRUGS (2)
  1. PAROXETINE HYDROCHLORIDE [Suspect]
     Active Substance: PAROXETINE HYDROCHLORIDE
     Indication: Product used for unknown indication
  2. LEVOMEPROMAZINE [Suspect]
     Active Substance: LEVOMEPROMAZINE

REACTIONS (4)
  - Poisoning [Unknown]
  - Drug interaction [Unknown]
  - Overdose [Unknown]
  - Electrocardiogram QRS complex [Recovered/Resolved]
